FAERS Safety Report 19860153 (Version 1)
Quarter: 2021Q3

REPORT INFORMATION
  Report Type: Report from Study
  Country: US (occurrence: US)
  Receive Date: 20210920
  Receipt Date: 20210920
  Transmission Date: 20211014
  Serious: Yes (Life-Threatening, Hospitalization, Other)
  Sender: FDA-Public Use
  Company Number: US-BRISTOL-MYERS SQUIBB COMPANY-BMS-2021-093372

PATIENT
  Age: 48 Year
  Sex: Male
  Weight: 101.6 kg

DRUGS (2)
  1. IPILIMUMAB [Suspect]
     Active Substance: IPILIMUMAB
     Indication: PROSTATE CANCER
     Dosage: 3 MG/KG (315 MG, ONCE)
     Route: 042
     Dates: start: 20210204, end: 20210330
  2. DS3201 [Suspect]
     Active Substance: INVESTIGATIONAL PRODUCT
     Indication: PROSTATE CANCER
     Dosage: 150 MILLIGRAM, QD
     Route: 048

REACTIONS (4)
  - Haematuria [Recovering/Resolving]
  - Shock haemorrhagic [Unknown]
  - Hypotension [Unknown]
  - Hyponatraemia [Unknown]

NARRATIVE: CASE EVENT DATE: 20210823
